FAERS Safety Report 8161428-X (Version None)
Quarter: 2012Q1

REPORT INFORMATION
  Report Type: 
  Country: None (occurrence: None)
  Receive Date: 20120222
  Receipt Date: 20120222
  Transmission Date: 20120608
  Serious: No
  Sender: FDA-Public Use
  Company Number: None

PATIENT
  Sex: Female

DRUGS (1)
  1. REVATIO [Suspect]
     Dosage: 20 MG TID PO
     Route: 048
     Dates: start: 20100629, end: 20120217

REACTIONS (1)
  - VISUAL ACUITY REDUCED [None]
